FAERS Safety Report 7622724-5 (Version None)
Quarter: 2011Q3

REPORT INFORMATION
  Report Type: 
  Country: None (occurrence: None)
  Receive Date: 20110712
  Receipt Date: 20110627
  Transmission Date: 20111222
  Serious: Yes (Death)
  Sender: FDA-Public Use
  Company Number: 872981

PATIENT
  Age: 87 Year
  Sex: Male
  Weight: 87.73 kg

DRUGS (16)
  1. VANCOMYCIN HCL [Suspect]
     Indication: OSTEOMYELITIS
     Dosage: 1 G, Q12H, INTRAVENOUS
     Route: 042
     Dates: start: 20110216, end: 20110221
  2. HEPARIN SODIUM INJECTION [Concomitant]
  3. VANCOMYCIN HCL [Suspect]
     Indication: OSTEOMYELITIS
     Dosage: 1 G, Q12H, INTRAVENOUS
     Route: 042
     Dates: start: 20110216, end: 20110221
  4. SIMVASTATIN [Concomitant]
  5. SERTRALINE HYDROCHLORIDE [Concomitant]
  6. VANCOMYCIN HYDROCHLORIDE [Suspect]
     Indication: OSTEOMYELITIS
     Dosage: 1 G, Q12H, INTRAVENOUS
     Route: 042
     Dates: start: 20110216, end: 20110221
  7. ROSIGLITAZONE [Concomitant]
  8. CILOSTAZOL [Concomitant]
  9. LISINOPRIL [Concomitant]
  10. OXYCODONE HCL [Concomitant]
  11. PANTOPRAZOLE [Concomitant]
  12. GLIPIZIDE [Concomitant]
  13. REGULAR INSULIN [Concomitant]
  14. TEMAZEPAM [Concomitant]
  15. VANCOMYCIN HYDROCHLORIDE [Suspect]
     Indication: OSTEOMYELITIS
     Dosage: 1 G, Q12H, INTRAVENOUS
     Route: 042
     Dates: start: 20110216, end: 20110221
  16. QUETIAPINE [Concomitant]

REACTIONS (3)
  - DIALYSIS [None]
  - NEPHROPATHY TOXIC [None]
  - BLOOD CREATININE INCREASED [None]
